FAERS Safety Report 7280382-6 (Version None)
Quarter: 2011Q1

REPORT INFORMATION
  Report Type: 
  Country: None (occurrence: None)
  Receive Date: 20110208
  Receipt Date: 20110203
  Transmission Date: 20110831
  Serious: Yes (Other)
  Sender: FDA-Public Use
  Company Number: GB-ELI_LILLY_AND_COMPANY-GB201011006971

PATIENT
  Sex: Male
  Weight: 115 kg

DRUGS (15)
  1. EXENATIDE [Suspect]
     Indication: TYPE 2 DIABETES MELLITUS
     Dosage: 10 UG, 2/D
     Route: 058
     Dates: start: 20100427, end: 20100706
  2. METFORMIN HCL [Suspect]
     Indication: TYPE 2 DIABETES MELLITUS
     Dosage: 2 G, UNK
     Dates: start: 20070425
  3. DILTIAZEM [Concomitant]
     Indication: ANGINA PECTORIS
     Dates: start: 20070215
  4. LANSOPRAZOLE [Concomitant]
     Dates: start: 20070111
  5. TAMSULOSIN HCL [Concomitant]
     Dates: start: 20071111
  6. INSULIN GLARGINE [Suspect]
     Indication: TYPE 2 DIABETES MELLITUS
     Dosage: 12 U, UNK
     Dates: start: 20090721
  7. DUTASTERIDE [Concomitant]
     Dates: start: 20071111
  8. RAMIPRIL [Concomitant]
     Indication: HYPERTENSION
     Dates: start: 20071128
  9. GLICLAZIDE [Concomitant]
     Indication: DIABETES MELLITUS
     Dates: start: 20071023
  10. BENDROFLUMETHIAZIDE [Concomitant]
     Indication: HYPERTENSION
     Dates: start: 20080212
  11. NICORANDIL [Concomitant]
     Dates: start: 20070215
  12. NITROGLYCERIN [Concomitant]
     Indication: ANGINA PECTORIS
     Dates: start: 20070215
  13. SIMVASTATIN [Concomitant]
     Indication: ARTERIOSCLEROSIS CORONARY ARTERY
     Dates: start: 20070131
  14. ASPIRIN [Concomitant]
     Dates: start: 20071111
  15. TRAMADOL HCL [Concomitant]
     Indication: ANGIOPATHY
     Dates: start: 20071111

REACTIONS (2)
  - HEPATIC ENZYME INCREASED [None]
  - PANCREATIC CARCINOMA [None]
